FAERS Safety Report 14966730 (Version 1)
Quarter: 2018Q2

REPORT INFORMATION
  Report Type: Spontaneous
  Country: IT (occurrence: IT)
  Receive Date: 20180604
  Receipt Date: 20180604
  Transmission Date: 20180711
  Serious: Yes (Hospitalization, Other)
  Sender: FDA-Public Use
  Company Number: IT-CHEPLA-C20170363

PATIENT
  Sex: Female

DRUGS (1)
  1. ORLISTAT. [Suspect]
     Active Substance: ORLISTAT

REACTIONS (2)
  - Chronic hepatitis [Not Recovered/Not Resolved]
  - Hepatitis acute [Not Recovered/Not Resolved]

NARRATIVE: CASE EVENT DATE: 20170401
